FAERS Safety Report 9164925 (Version 1)
Quarter: 2013Q1

REPORT INFORMATION
  Report Type: Spontaneous
  Country: US (occurrence: None)
  Receive Date: 20130313
  Receipt Date: 20130313
  Transmission Date: 20140127
  Serious: Yes (Life-Threatening)
  Sender: FDA-Public Use
  Company Number: None

PATIENT
  Age: 89 Year
  Sex: Male
  Weight: 48.04 kg

DRUGS (1)
  1. PROPOFOL [Suspect]
     Indication: SURGERY
     Dosage: 120 MG  ONCE  IV?01/30/2013  THRU  01/30/2013
     Route: 042
     Dates: start: 20130130, end: 20130130

REACTIONS (2)
  - Hypotension [None]
  - Cardiac arrest [None]
